FAERS Safety Report 9207705 (Version 1)
Quarter: 2013Q2

REPORT INFORMATION
  Report Type: Spontaneous
  Country: NO (occurrence: NO)
  Receive Date: 20130403
  Receipt Date: 20130403
  Transmission Date: 20140414
  Serious: Yes (Hospitalization)
  Sender: FDA-Public Use
  Company Number: NO-ASTRAZENECA-2013SE20069

PATIENT
  Age: 767 Month
  Sex: Female

DRUGS (9)
  1. SELOKEN ZOC [Suspect]
     Indication: CARDIAC FIBRILLATION
     Route: 048
     Dates: start: 201209, end: 201301
  2. MELOXICAM [Suspect]
     Indication: PAIN IN JAW
     Route: 048
     Dates: start: 2009, end: 201209
  3. MULTAQ [Suspect]
     Indication: CARDIAC FIBRILLATION
     Route: 065
     Dates: start: 201301
  4. ACLASTA [Concomitant]
     Indication: OSTEOPOROSIS
     Dates: start: 201108
  5. SANDOSTATIN [Concomitant]
     Indication: BLOOD GROWTH HORMONE INCREASED
     Dates: end: 201209
  6. PARACET [Concomitant]
     Dosage: 500MG UP TO X4 PER DAY
  7. LEVAXIN [Concomitant]
  8. PREDNISOLON [Concomitant]
  9. FURADATIN [Concomitant]
     Indication: PROPHYLAXIS URINARY TRACT INFECTION

REACTIONS (5)
  - Myalgia [Unknown]
  - Liver function test abnormal [Unknown]
  - Cardiac fibrillation [Unknown]
  - Abdominal pain upper [Recovered/Resolved]
  - Pain in jaw [Unknown]
